FAERS Safety Report 8767418 (Version 2)
Quarter: 2013Q3

REPORT INFORMATION
  Report Type: Spontaneous
  Country: DE (occurrence: DE)
  Receive Date: 20120904
  Receipt Date: 20130805
  Transmission Date: 20140515
  Serious: Yes (Hospitalization)
  Sender: FDA-Public Use
  Company Number: DE-PFIZER INC-2012210698

PATIENT
  Age: 34 Year
  Sex: Male
  Weight: 128 kg

DRUGS (3)
  1. LYRICA [Suspect]
     Dosage: 6 TABLETS DAILY
     Route: 048
     Dates: start: 2010
  2. LYRICA [Suspect]
     Dosage: 50 MG, UNK
     Route: 048
     Dates: end: 201204
  3. METHADONE HYDROCHLORIDE [Concomitant]
     Indication: DRUG DEPENDENCE
     Dosage: UNK
     Route: 048
     Dates: start: 1998

REACTIONS (9)
  - Drug abuse [Unknown]
  - Drug dependence [Unknown]
  - Anxiety [Unknown]
  - Nervousness [Unknown]
  - Withdrawal syndrome [Unknown]
  - Sleep disorder [Unknown]
  - Arthropathy [Unknown]
  - Restlessness [Unknown]
  - Muscle disorder [Unknown]
